FAERS Safety Report 12159763 (Version 1)
Quarter: 2016Q1

REPORT INFORMATION
  Report Type: Spontaneous
  Country: CA (occurrence: CA)
  Receive Date: 20160308
  Receipt Date: 20160308
  Transmission Date: 20160526
  Serious: Yes (Other)
  Sender: FDA-Public Use
  Company Number: CA-ASTRAZENECA-2015SF28273

PATIENT
  Age: 47 Year
  Sex: Female

DRUGS (1)
  1. SYMBICORT [Suspect]
     Active Substance: BUDESONIDE\FORMOTEROL FUMARATE DIHYDRATE
     Dosage: 160MCG/4.5MCG, TWO TIMES A DAY
     Route: 055
     Dates: start: 20151103, end: 20151112

REACTIONS (4)
  - Oropharyngeal pain [Recovered/Resolved]
  - Candida infection [Recovered/Resolved]
  - Dysphagia [Recovered/Resolved]
  - Product quality issue [Unknown]
